FAERS Safety Report 7060174-3 (Version None)
Quarter: 2010Q4

REPORT INFORMATION
  Report Type: 
  Country: None (occurrence: None)
  Receive Date: 20101025
  Receipt Date: 20101021
  Transmission Date: 20110411
  Serious: Yes (Death)
  Sender: FDA-Public Use
  Company Number: PHHY2010AU70649

PATIENT
  Sex: Male
  Weight: 85 kg

DRUGS (4)
  1. AFINITOR [Suspect]
     Indication: RENAL CANCER
     Dosage: 5 MG/DAY
     Route: 048
     Dates: end: 20100924
  2. PARACETAMOL [Concomitant]
     Indication: PAIN
     Dosage: 665 MG
     Route: 048
  3. OXYCONTIN [Concomitant]
     Indication: PAIN
     Dosage: 30 MG
     Route: 048
  4. LANTUS [Concomitant]
     Indication: DIABETES MELLITUS
     Dosage: UNK
     Route: 058

REACTIONS (1)
  - ACUTE HEPATIC FAILURE [None]
